FAERS Safety Report 16362419 (Version 5)
Quarter: 2019Q3

REPORT INFORMATION
  Report Type: Spontaneous
  Country: US (occurrence: US)
  Receive Date: 20190528
  Receipt Date: 20190812
  Transmission Date: 20191004
  Serious: No
  Sender: FDA-Public Use
  Company Number: US-PFIZER INC-2019225789

PATIENT
  Age: 82 Year
  Sex: Female
  Weight: 52 kg

DRUGS (2)
  1. PREMARIN [Suspect]
     Active Substance: ESTROGENS, CONJUGATED
     Indication: HORMONE THERAPY
     Dosage: 0.5 G, UNK  (3 TIMES EVERY WEEK )
     Route: 067
  2. PREMARIN [Suspect]
     Active Substance: ESTROGENS, CONJUGATED
     Indication: VULVOVAGINAL DRYNESS
     Dosage: 0.5 G, UNK (0.5G BY VAGINAL ROUTE 2 -3 TIMES EVERY WEEK)
     Route: 067

REACTIONS (3)
  - Vulvovaginal discomfort [Not Recovered/Not Resolved]
  - Dizziness [Unknown]
  - Off label use [Unknown]
